FAERS Safety Report 5381393-8 (Version None)
Quarter: 2007Q3

REPORT INFORMATION
  Report Type: 
  Country: None (occurrence: None)
  Receive Date: 20070709
  Receipt Date: 20070625
  Transmission Date: 20080115
  Serious: Yes (Other)
  Sender: FDA-Public Use
  Company Number: FR-JNJFOC-20070606856

PATIENT
  Age: 23 Year
  Sex: Female

DRUGS (3)
  1. INFLIXIMAB [Suspect]
     Route: 042
  2. INFLIXIMAB [Suspect]
     Indication: INFLAMMATION
     Route: 042
  3. INFLIXIMAB [Suspect]
     Indication: PYREXIA
     Route: 042

REACTIONS (4)
  - ANAEMIA [None]
  - MYOSITIS [None]
  - OEDEMA [None]
  - PARADOXICAL DRUG REACTION [None]
